FAERS Safety Report 17035274 (Version 1)
Quarter: 2019Q4

REPORT INFORMATION
  Report Type: Report from Study
  Country: None (occurrence: AR)
  Receive Date: 20191115
  Receipt Date: 20191115
  Transmission Date: 20200122
  Serious: Yes (Other)
  Sender: FDA-Public Use
  Company Number: AR-ABBVIE-19K-007-3001392-00

PATIENT
  Age: 62 Year
  Sex: Female

DRUGS (1)
  1. HUMIRA [Suspect]
     Active Substance: ADALIMUMAB
     Indication: PSORIASIS
     Route: 058
     Dates: start: 20110902

REACTIONS (4)
  - Oral candidiasis [Unknown]
  - Psoriasis [Unknown]
  - Throat irritation [Unknown]
  - Pharyngeal haemorrhage [Recovering/Resolving]

NARRATIVE: CASE EVENT DATE: 20191111
